FAERS Safety Report 22375442 (Version 1)
Quarter: 2023Q2

REPORT INFORMATION
  Report Type: Spontaneous
  Country: US (occurrence: US)
  Receive Date: 20230527
  Receipt Date: 20230527
  Transmission Date: 20230721
  Serious: No
  Sender: FDA-Public Use
  Company Number: US-PERRIGO-22US011931

PATIENT
  Age: 41 Year
  Sex: Male
  Weight: 68.027 kg

DRUGS (4)
  1. MINOXIDIL [Suspect]
     Active Substance: MINOXIDIL
     Indication: Alopecia
     Dosage: UNK, BID
     Route: 061
     Dates: start: 202202, end: 202208
  2. MINOXIDIL [Suspect]
     Active Substance: MINOXIDIL
     Dosage: UNK, QD
     Route: 061
     Dates: start: 202208, end: 202208
  3. OZEMPIC [Concomitant]
     Active Substance: SEMAGLUTIDE
     Indication: Weight decreased
     Dosage: UNK
     Route: 065
     Dates: start: 202201
  4. CIALIS [Concomitant]
     Active Substance: TADALAFIL
     Indication: Erectile dysfunction
     Dosage: UNK
     Route: 065
     Dates: start: 202201

REACTIONS (4)
  - Urticaria [Recovered/Resolved]
  - Application site pruritus [Not Recovered/Not Resolved]
  - Incorrect dose administered [Unknown]
  - Inappropriate schedule of product administration [Unknown]

NARRATIVE: CASE EVENT DATE: 20220201
